FAERS Safety Report 18686704 (Version 1)
Quarter: 2020Q4

REPORT INFORMATION
  Report Type: Spontaneous
  Country: US (occurrence: US)
  Receive Date: 20201230
  Receipt Date: 20201230
  Transmission Date: 20210114
  Serious: Yes (Death, Hospitalization)
  Sender: FDA-Public Use
  Company Number: US-JNJFOC-20201246735

PATIENT
  Age: 17 Year
  Sex: Female

DRUGS (1)
  1. PARACETAMOL [Suspect]
     Active Substance: ACETAMINOPHEN
     Indication: PRODUCT USED FOR UNKNOWN INDICATION
     Route: 065

REACTIONS (16)
  - Blood lactic acid increased [Fatal]
  - Electroencephalogram abnormal [Fatal]
  - Intracranial pressure increased [Fatal]
  - Shock [Fatal]
  - Intentional overdose [Fatal]
  - International normalised ratio increased [Fatal]
  - Sinus tachycardia [Fatal]
  - Unresponsive to stimuli [Fatal]
  - Ammonia increased [Fatal]
  - Jaundice [Fatal]
  - Alanine aminotransferase increased [Fatal]
  - Miosis [Fatal]
  - Brain oedema [Fatal]
  - Completed suicide [Fatal]
  - Aspartate aminotransferase increased [Fatal]
  - Oropharyngeal pain [Fatal]
